FAERS Safety Report 21274212 (Version 2)
Quarter: 2022Q3

REPORT INFORMATION
  Report Type: Spontaneous
  Country: DE (occurrence: DE)
  Receive Date: 20220831
  Receipt Date: 20220923
  Transmission Date: 20221027
  Serious: Yes (Other)
  Sender: FDA-Public Use
  Company Number: None

PATIENT
  Sex: Male
  Weight: 3.87 kg

DRUGS (3)
  1. CYTOTEC [Suspect]
     Active Substance: MISOPROSTOL
     Indication: Labour induction
     Dosage: UNK
     Route: 064
     Dates: start: 20071029, end: 20071030
  2. CYTOTEC [Suspect]
     Active Substance: MISOPROSTOL
     Dosage: 25 UG
     Route: 064
     Dates: start: 20071030, end: 20071030
  3. CYTOTEC [Suspect]
     Active Substance: MISOPROSTOL
     Dosage: 50 UG
     Route: 064
     Dates: start: 20071030, end: 20071030

REACTIONS (4)
  - Foetal exposure during delivery [Unknown]
  - Hemiparesis [Unknown]
  - Neonatal hypoxia [Unknown]
  - Foetal heart rate abnormal [Unknown]

NARRATIVE: CASE EVENT DATE: 20071001
